FAERS Safety Report 8800521 (Version 2)
Quarter: 2012Q4

REPORT INFORMATION
  Report Type: Report from Study
  Country: DE (occurrence: DE)
  Receive Date: 20120921
  Receipt Date: 20121015
  Transmission Date: 20130627
  Serious: Yes (Hospitalization, Other)
  Sender: FDA-Public Use
  Company Number: DE-CELGENEUS-062-21880-12060400

PATIENT
  Age: 58 Year
  Sex: Male
  Weight: 83 kg

DRUGS (5)
  1. REVLIMID [Suspect]
     Indication: MULTIPLE MYELOMA
     Dosage: 25 Milligram
     Route: 048
     Dates: start: 20120503, end: 20120518
  2. BORTEZOMIB [Suspect]
     Indication: MULTIPLE MYELOMA
     Route: 041
     Dates: start: 20120228, end: 20120516
  3. PANTOZOL [Concomitant]
     Indication: ANTIVIRAL PROPHYLAXIS
     Route: 065
  4. ALPHA LIPONERE [Concomitant]
     Indication: POLYNEUROPATHY
     Route: 065
  5. BONDRONAT [Concomitant]
     Indication: BONE DISORDER NOS
     Dosage: .2143 Milligram
     Route: 065

REACTIONS (1)
  - Guillain-Barre syndrome [Recovered/Resolved]
